FAERS Safety Report 6200884-0 (Version None)
Quarter: 2009Q2

REPORT INFORMATION
  Report Type: 
  Country: None (occurrence: None)
  Receive Date: 20090523
  Receipt Date: 20081021
  Transmission Date: 20091009
  Serious: Yes (Hospitalization)
  Sender: FDA-Public Use
  Company Number: US-ALEXION-A200800300

PATIENT
  Sex: Male

DRUGS (1)
  1. SOLIRIS [Suspect]
     Dosage: UNK, UNK

REACTIONS (3)
  - EPISTAXIS [None]
  - HAEMOLYSIS [None]
  - PLATELET COUNT DECREASED [None]
